FAERS Safety Report 10433708 (Version 6)
Quarter: 2020Q2

REPORT INFORMATION
  Report Type: Report from Study
  Country: DE (occurrence: DE)
  Receive Date: 20140905
  Receipt Date: 20200522
  Transmission Date: 20200713
  Serious: Yes (Hospitalization)
  Sender: FDA-Public Use
  Company Number: DE-SA-2014SA113692

PATIENT
  Age: 64 Year
  Sex: Female
  Weight: 85 kg

DRUGS (8)
  1. FOLINIC ACID [Concomitant]
     Active Substance: LEUCOVORIN
     Dosage: UNK UNK,QCY
     Dates: start: 20140805, end: 20140805
  2. FLUOROURACIL. [Concomitant]
     Active Substance: FLUOROURACIL
     Dosage: UNK UNK,QCY
     Dates: start: 20140805, end: 20140805
  3. AFLIBERCEPT [Suspect]
     Active Substance: AFLIBERCEPT
     Indication: COLORECTAL CANCER METASTATIC
     Dosage: 332 MG,QCY
     Route: 042
     Dates: start: 20140805, end: 20140805
  4. FLUOROURACIL. [Concomitant]
     Active Substance: FLUOROURACIL
     Indication: COLORECTAL CANCER METASTATIC
     Dosage: UNK UNK,QCY
     Dates: start: 20140708, end: 20140708
  5. FOLINIC ACID [Concomitant]
     Active Substance: LEUCOVORIN
     Indication: COLORECTAL CANCER METASTATIC
     Dosage: UNK UNK,QCY
     Dates: start: 20140708, end: 20140708
  6. IRINOTECAN [Concomitant]
     Active Substance: IRINOTECAN
     Dosage: UNK UNK,QCY
     Dates: start: 20140805, end: 20140805
  7. AFLIBERCEPT [Suspect]
     Active Substance: AFLIBERCEPT
     Dosage: 4 MG/KG,QCY
     Route: 042
     Dates: start: 20140708, end: 20140708
  8. IRINOTECAN [Concomitant]
     Active Substance: IRINOTECAN
     Indication: COLORECTAL CANCER METASTATIC
     Dosage: UNK UNK,QCY
     Dates: start: 20140708, end: 20140708

REACTIONS (3)
  - General physical health deterioration [Recovering/Resolving]
  - Acute kidney injury [Unknown]
  - Sepsis [Recovered/Resolved]

NARRATIVE: CASE EVENT DATE: 20140818
